FAERS Safety Report 6679627-2 (Version None)
Quarter: 2010Q2

REPORT INFORMATION
  Report Type: 
  Country: None (occurrence: None)
  Receive Date: 20100413
  Receipt Date: 20100412
  Transmission Date: 20101027
  Serious: Yes (Hospitalization)
  Sender: FDA-Public Use
  Company Number: A0798471A

PATIENT
  Sex: Female

DRUGS (1)
  1. AVANDIA [Suspect]
     Dosage: 4MG TWICE PER DAY
     Route: 048
     Dates: start: 20021201, end: 20040101

REACTIONS (4)
  - CARDIAC FAILURE CONGESTIVE [None]
  - GENERALISED OEDEMA [None]
  - INJURY [None]
  - PERICARDIAL EFFUSION [None]
